FAERS Safety Report 8592910-9 (Version None)
Quarter: 2012Q3

REPORT INFORMATION
  Report Type: 
  Country: None (occurrence: None)
  Receive Date: 20120814
  Receipt Date: 20120731
  Transmission Date: 20120928
  Serious: Yes (Hospitalization)
  Sender: FDA-Public Use
  Company Number: FR-SP-2012-05855

PATIENT
  Sex: Male

DRUGS (6)
  1. INDAPAMIDE [Concomitant]
     Dates: end: 20120222
  2. LEVEMIR [Concomitant]
  3. MICARDIS [Concomitant]
     Dates: end: 20120222
  4. IMMUCYST [Suspect]
     Indication: BLADDER CANCER
     Route: 043
     Dates: start: 20120130, end: 20120130
  5. ASPIRIN [Concomitant]
  6. NOVORAPID [Concomitant]

REACTIONS (10)
  - JAUNDICE [None]
  - LEUKOCYTURIA [None]
  - URINARY TRACT INFECTION [None]
  - DIABETES MELLITUS INADEQUATE CONTROL [None]
  - LUNG INFECTION [None]
  - GENERAL PHYSICAL HEALTH DETERIORATION [None]
  - ENDOCARDITIS [None]
  - PYREXIA [None]
  - PROSTATITIS [None]
  - PYELONEPHRITIS [None]
